FAERS Safety Report 16593676 (Version 1)
Quarter: 2019Q3

REPORT INFORMATION
  Report Type: Report from Study
  Country: GB (occurrence: GB)
  Receive Date: 20190718
  Receipt Date: 20190718
  Transmission Date: 20191004
  Serious: Yes (Hospitalization)
  Sender: FDA-Public Use
  Company Number: PHHY2019GB150901

PATIENT
  Sex: Female

DRUGS (3)
  1. HYRIMOZ [Suspect]
     Active Substance: ADALIMUMAB-ADAZ
     Dosage: EVERY OTHER WEEK, PREFILLED PEN
     Route: 065
  2. HYRIMOZ [Suspect]
     Active Substance: ADALIMUMAB-ADAZ
     Dosage: EVERY OTHER WEEK, PREFILLED PEN
     Route: 065
     Dates: start: 20190710
  3. HYRIMOZ [Suspect]
     Active Substance: ADALIMUMAB-ADAZ
     Indication: COLITIS ULCERATIVE
     Dosage: UNK UNK, QW2
     Route: 065
     Dates: start: 20190611

REACTIONS (5)
  - Gingival bleeding [Unknown]
  - Vomiting [Unknown]
  - Headache [Unknown]
  - Haematemesis [Unknown]
  - Malaise [Unknown]
